FAERS Safety Report 16799795 (Version 1)
Quarter: 2019Q3

REPORT INFORMATION
  Report Type: Spontaneous
  Country: CN (occurrence: CN)
  Receive Date: 20190912
  Receipt Date: 20190912
  Transmission Date: 20191005
  Serious: Yes (Hospitalization, Other)
  Sender: FDA-Public Use
  Company Number: CN-PFIZER INC-2019391489

PATIENT
  Age: 13 Year
  Sex: Female

DRUGS (4)
  1. PREDNISONE ACETATE [Suspect]
     Active Substance: PREDNISONE ACETATE
     Dosage: 10 MG, 1X/DAY
     Route: 048
     Dates: start: 20190601, end: 20190829
  2. PREDNISONE ACETATE [Suspect]
     Active Substance: PREDNISONE ACETATE
     Indication: NEPHROTIC SYNDROME
     Dosage: 30 MG, 1X/DAY
     Route: 048
     Dates: start: 20180901, end: 20190331
  3. METHYLPREDNISOLONE SODIUM SUCCINATE. [Suspect]
     Active Substance: METHYLPREDNISOLONE SODIUM SUCCINATE
     Indication: NEPHROTIC SYNDROME
     Dosage: 30 MG, 1X/DAY
     Route: 041
     Dates: start: 20190830, end: 20190902
  4. PREDNISONE ACETATE [Suspect]
     Active Substance: PREDNISONE ACETATE
     Dosage: 20 MG, 1X/DAY
     Route: 048
     Dates: start: 20190401, end: 20190531

REACTIONS (4)
  - Nephrotic syndrome [Unknown]
  - Urine analysis abnormal [Unknown]
  - Osteoporosis [Not Recovered/Not Resolved]
  - Disease recurrence [Unknown]

NARRATIVE: CASE EVENT DATE: 20190831
